FAERS Safety Report 4296799-8 (Version None)
Quarter: 2004Q1

REPORT INFORMATION
  Report Type: 
  Country: None (occurrence: None)
  Receive Date: 20040217
  Receipt Date: 20040209
  Transmission Date: 20041129
  Serious: Yes (Other)
  Sender: FDA-Public Use
  Company Number: PHFR2004GB00970

PATIENT
  Age: 83 Year
  Sex: Male

DRUGS (8)
  1. TERBINAFINE HCL [Suspect]
     Dosage: 250MG/DAY
     Route: 048
     Dates: start: 20040101
  2. VITAMIN B-12 [Concomitant]
     Indication: PERNICIOUS ANAEMIA
     Route: 042
     Dates: start: 20040113
  3. DIGOXIN [Concomitant]
  4. ATORVASTATIN [Concomitant]
  5. THYROXINE [Concomitant]
  6. WARFARIN SODIUM [Interacting]
  7. VENTOLIN [Concomitant]
  8. BECLOMETHASONE DIPROPIONATE [Concomitant]

REACTIONS (1)
  - INTERNATIONAL NORMALISED RATIO DECREASED [None]
